FAERS Safety Report 25483664 (Version 4)
Quarter: 2025Q4

REPORT INFORMATION
  Report Type: Spontaneous
  Country: EU (occurrence: EU)
  Receive Date: 20250626
  Receipt Date: 20251006
  Transmission Date: 20260118
  Serious: No
  Sender: SANOFI AVENTIS
  Company Number: EU-SANOFI-02567285

PATIENT
  Age: 65 Year
  Sex: Female

DRUGS (1)
  1. DUPIXENT [Suspect]
     Active Substance: DUPILUMAB
     Indication: Nasal polyps
     Dosage: 2 DF, 1X
     Dates: start: 202312, end: 202312

REACTIONS (10)
  - Cutaneous sarcoidosis [Recovering/Resolving]
  - Joint swelling [Recovering/Resolving]
  - Arthralgia [Recovering/Resolving]
  - Cutaneous symptom [Recovering/Resolving]
  - Nodule [Recovering/Resolving]
  - Granuloma [Recovering/Resolving]
  - Lymphadenopathy [Recovering/Resolving]
  - Skin mass [Recovering/Resolving]
  - Inflammation [Recovering/Resolving]
  - Drug ineffective [Recovering/Resolving]
